FAERS Safety Report 5559175-3 (Version None)
Quarter: 2007Q4

REPORT INFORMATION
  Report Type: 
  Country: None (occurrence: None)
  Receive Date: 20071214
  Receipt Date: 20070919
  Transmission Date: 20080405
  Serious: No
  Sender: FDA-Public Use
  Company Number: US-ABBOTT-07P-163-0417894-00

PATIENT
  Sex: Male
  Weight: 81.266 kg

DRUGS (1)
  1. HUMIRA [Suspect]
     Indication: CROHN'S DISEASE
     Dosage: 160MG, THEN 80MG IN TWO WEEKS, THEN 40MG EVERY TWO WEEKS
     Route: 058
     Dates: start: 20070919, end: 20070919

REACTIONS (1)
  - PROCEDURAL COMPLICATION [None]
